FAERS Safety Report 4296925-0 (Version None)
Quarter: 2004Q1

REPORT INFORMATION
  Report Type: 
  Country: None (occurrence: None)
  Receive Date: 20040213
  Receipt Date: 20040209
  Transmission Date: 20041129
  Serious: Yes (Life-Threatening)
  Sender: FDA-Public Use
  Company Number: 2004AP00525

PATIENT
  Age: 40 Year
  Sex: Female
  Weight: 12.5193 kg

DRUGS (2)
  1. OMEPRAZOLE [Suspect]
     Indication: DUODENAL ULCER
     Dosage: 20 MG DAILY PO
     Route: 048
     Dates: start: 20040115, end: 20040121
  2. NEO-MINOPHAGEN C [Concomitant]

REACTIONS (2)
  - PLATELET COUNT DECREASED [None]
  - WHITE BLOOD CELL COUNT DECREASED [None]
